FAERS Safety Report 6037855-3 (Version None)
Quarter: 2009Q1

REPORT INFORMATION
  Report Type: 
  Country: None (occurrence: None)
  Receive Date: 20090114
  Receipt Date: 20090114
  Transmission Date: 20090719
  Serious: No
  Sender: FDA-Public Use
  Company Number: None

PATIENT

DRUGS (1)
  1. ALEVE (CAPLET) [Suspect]
     Indication: PAIN
     Dosage: 220MG AS NEEDED FOR PAIN PO
     Route: 048
     Dates: start: 20090103, end: 20090112

REACTIONS (4)
  - DRUG EFFECT DECREASED [None]
  - DYSPEPSIA [None]
  - GOUT [None]
  - PRODUCT QUALITY ISSUE [None]
